FAERS Safety Report 9168076 (Version 1)
Quarter: 2013Q1

REPORT INFORMATION
  Report Type: Spontaneous
  Country: JP (occurrence: None)
  Receive Date: 20130307
  Receipt Date: 20130307
  Transmission Date: 20140127
  Serious: No
  Sender: FDA-Public Use
  Company Number: TPA2013A01863

PATIENT
  Sex: 0

DRUGS (1)
  1. FEBURIC (FEBUXOSTAT) [Suspect]
     Indication: HYPERURICAEMIA
     Route: 048
     Dates: start: 20130212, end: 20130222

REACTIONS (1)
  - Granulocytopenia [None]
